FAERS Safety Report 15985968 (Version 4)
Quarter: 2019Q2

REPORT INFORMATION
  Report Type: Report from Study
  Country: US (occurrence: US)
  Receive Date: 20190220
  Receipt Date: 20190417
  Transmission Date: 20190711
  Serious: No
  Sender: FDA-Public Use
  Company Number: US-IPSEN BIOPHARMACEUTICALS, INC.-2019-01653

PATIENT
  Age: 10 Year
  Sex: Female
  Weight: 37.9 kg

DRUGS (10)
  1. ZYRTEC [Concomitant]
     Active Substance: CETIRIZINE HYDROCHLORIDE
     Indication: RHINITIS ALLERGIC
     Route: 048
     Dates: start: 2009
  2. KEPPRA [Concomitant]
     Active Substance: LEVETIRACETAM
     Indication: POST-TRAUMATIC EPILEPSY
     Route: 048
     Dates: start: 20150901
  3. KEPPRA [Concomitant]
     Active Substance: LEVETIRACETAM
     Route: 048
     Dates: start: 20150901
  4. FLONASE [Concomitant]
     Active Substance: FLUTICASONE PROPIONATE
     Indication: RHINITIS ALLERGIC
     Dosage: 2 SPRAYS
     Route: 045
     Dates: start: 2012
  5. KEPPRA [Concomitant]
     Active Substance: LEVETIRACETAM
     Dosage: 900 (EACH MORNING) AND 950 MILLIGRAM (EACH EVENING)
     Route: 048
     Dates: start: 20180720
  6. MIRALAX [Concomitant]
     Active Substance: POLYETHYLENE GLYCOL 3350
     Indication: CONSTIPATION
     Dosage: 2 TEASPOON
     Route: 048
     Dates: start: 2011
  7. BACLOFEN. [Concomitant]
     Active Substance: BACLOFEN
     Indication: MUSCLE SPASTICITY
     Route: 048
     Dates: start: 20130501
  8. PROIR HFA [Concomitant]
     Indication: ASTHMA
     Dosage: 2 PUFF INHALERS
     Route: 045
     Dates: start: 20130110
  9. DYSPORT [Suspect]
     Active Substance: ABOBOTULINUMTOXINA
     Indication: MUSCLE SPASTICITY
     Dosage: 1000 UNITS
     Route: 030
     Dates: start: 20180501, end: 20180501
  10. DIASTAT [Concomitant]
     Active Substance: DIAZEPAM
     Indication: POST-TRAUMATIC EPILEPSY
     Route: 054
     Dates: start: 20150827

REACTIONS (6)
  - Fatigue [Recovered/Resolved]
  - Fatigue [Recovered/Resolved]
  - Asthenia [Recovered/Resolved]
  - Asthenia [Recovered/Resolved]
  - Upper respiratory tract infection [Recovered/Resolved]
  - Gastroenteritis [Recovered/Resolved]

NARRATIVE: CASE EVENT DATE: 20181002
